FAERS Safety Report 20972751 (Version 3)
Quarter: 2022Q4

REPORT INFORMATION
  Report Type: Report from Study
  Country: CA (occurrence: CA)
  Receive Date: 20220617
  Receipt Date: 20221122
  Transmission Date: 20230112
  Serious: Yes (Death, Hospitalization, Other)
  Sender: FDA-Public Use
  Company Number: CA-ABBVIE-22K-028-4434481-00

PATIENT
  Sex: Female

DRUGS (2)
  1. SKYRIZI [Suspect]
     Active Substance: RISANKIZUMAB-RZAA
     Indication: Psoriasis
     Dosage: FORM STRENGTH 75 MILLIGRAM
     Route: 058
     Dates: start: 20210312, end: 20220310
  2. SKYRIZI [Suspect]
     Active Substance: RISANKIZUMAB-RZAA
     Dosage: FORM STRENGTH 75 MILLIGRAM
     Route: 058
     Dates: start: 2022, end: 20220806

REACTIONS (7)
  - Death [Fatal]
  - Myocardial infarction [Unknown]
  - Tachycardia [Unknown]
  - Atrial fibrillation [Unknown]
  - Pain in extremity [Unknown]
  - Cardiac failure [Unknown]
  - Heart rate abnormal [Unknown]

NARRATIVE: CASE EVENT DATE: 20220101
